FAERS Safety Report 21146664 (Version 1)
Quarter: 2022Q3

REPORT INFORMATION
  Report Type: Spontaneous
  Country: US (occurrence: None)
  Receive Date: 20220728
  Receipt Date: 20220728
  Transmission Date: 20221027
  Serious: Yes (Death)
  Sender: FDA-Public Use
  Company Number: None

PATIENT
  Age: 16 Year
  Sex: Male

DRUGS (6)
  1. KITABIS PAK [Suspect]
     Active Substance: TOBRAMYCIN
     Indication: Drug therapy
     Dosage: 300MG/5ML  BID BY MOUTH ??ADDITIONAL MEDS TAKEN: GUANFACINE, HYPER SAL 7% LEVALBUTEROL NEB ?
     Route: 048
     Dates: start: 20220202
  2. PULMOZYME [Concomitant]
     Active Substance: DORNASE ALFA
  3. BUDESONIDE NEB [Concomitant]
  4. CETIRIZINE SYRUP [Concomitant]
  5. FLUOXETINE SYRUP [Concomitant]
  6. FLUTICASONE [Concomitant]
     Active Substance: FLUTICASONE

REACTIONS (1)
  - Post procedural complication [None]

NARRATIVE: CASE EVENT DATE: 20220720
